FAERS Safety Report 9681132 (Version 1)
Quarter: 2013Q4

REPORT INFORMATION
  Report Type: Spontaneous
  Country: US (occurrence: US)
  Receive Date: 20131111
  Receipt Date: 20131111
  Transmission Date: 20140711
  Serious: Yes (Hospitalization)
  Sender: FDA-Public Use
  Company Number: US-BAYER-2013-135977

PATIENT
  Age: 38 Year
  Sex: Female

DRUGS (6)
  1. YASMIN [Suspect]
  2. NORTRIPTYLINE [Concomitant]
     Dosage: 75 HS
  3. LEVORPHANOL [Concomitant]
     Dosage: 4 MG, TID
  4. LYRICA [Concomitant]
  5. IMITREX [Concomitant]
     Dosage: UNK UNK, PRN
  6. DILAUDID [Concomitant]
     Indication: MIGRAINE
     Dosage: UNK UNK, PRN

REACTIONS (2)
  - Pulmonary embolism [None]
  - Deep vein thrombosis [None]
